FAERS Safety Report 8670593 (Version 6)
Quarter: 2013Q1

REPORT INFORMATION
  Report Type: Spontaneous
  Country: US (occurrence: US)
  Receive Date: 20120718
  Receipt Date: 20130327
  Transmission Date: 20140127
  Serious: Yes (Hospitalization, Other)
  Sender: FDA-Public Use
  Company Number: US-ASTELLAS-2012US006053

PATIENT
  Age: 84 None
  Sex: Female
  Weight: 63 kg

DRUGS (4)
  1. VESICARE [Suspect]
     Indication: PRODUCT USED FOR UNKNOWN INDICATION
     Dosage: UNK
     Route: 048
  2. SYNTHROID [Concomitant]
     Indication: THYROID DISORDER
     Dosage: UID/QD
     Route: 048
  3. FISH OIL [Concomitant]
     Indication: SUPPLEMENTATION THERAPY
     Dosage: UNK
     Route: 065
  4. CALCIUM                            /00060701/ [Concomitant]
     Indication: SUPPLEMENTATION THERAPY
     Dosage: UNK
     Route: 065

REACTIONS (12)
  - Drug ineffective [Unknown]
  - Cataract operation [Unknown]
  - Eye haemorrhage [Unknown]
  - Hypoacusis [Unknown]
  - Osteoporosis [Unknown]
  - Arthritis [Unknown]
  - Hyperkeratosis [Unknown]
  - Urine flow decreased [Unknown]
  - Blood sodium decreased [Unknown]
  - Fall [Unknown]
  - Balance disorder [Recovered/Resolved]
  - Vision blurred [Not Recovered/Not Resolved]
